FAERS Safety Report 8724400 (Version 4)
Quarter: 2012Q4

REPORT INFORMATION
  Report Type: 
  Country: US (occurrence: US)
  Receive Date: 20120815
  Receipt Date: 20121227
  Transmission Date: 20130627
  Serious: Yes (Hospitalization, Other)
  Sender: FDA-Public Use
  Company Number: US-009507513-2012SP011795

PATIENT

DRUGS (1)
  1. NUVARING [Suspect]
     Indication: CONTRACEPTION
     Dosage: UNK
     Route: 067
     Dates: start: 200901, end: 20090315

REACTIONS (19)
  - Pulmonary embolism [Recovered/Resolved]
  - Deep vein thrombosis [Unknown]
  - Pulmonary mass [Unknown]
  - Phlebitis [Unknown]
  - Diarrhoea [Unknown]
  - Cough [Unknown]
  - Anxiety [Unknown]
  - Chest discomfort [Unknown]
  - Eye haemorrhage [Unknown]
  - Chest pain [Unknown]
  - Dyspnoea exertional [Unknown]
  - Vulvovaginal candidiasis [Unknown]
  - Pain in extremity [Unknown]
  - Tricuspid valve incompetence [Unknown]
  - Dyspepsia [Unknown]
  - Atrial fibrillation [Unknown]
  - Rhinitis allergic [Unknown]
  - Oedema peripheral [Unknown]
  - Peripheral embolism [Unknown]
